FAERS Safety Report 11072267 (Version 1)
Quarter: 2015Q2

REPORT INFORMATION
  Report Type: Spontaneous
  Country: US (occurrence: US)
  Receive Date: 20150428
  Receipt Date: 20150428
  Transmission Date: 20150821
  Serious: Yes (Other)
  Sender: FDA-Public Use
  Company Number: US-ACTAVIS-2015-08643

PATIENT
  Sex: Female

DRUGS (1)
  1. DULOXETINE HYDROCHLORIDE (AELLC) [Suspect]
     Active Substance: DULOXETINE HYDROCHLORIDE
     Indication: BACK PAIN
     Dosage: 60 MG, UNKNOWN
     Route: 065

REACTIONS (4)
  - Withdrawal syndrome [Unknown]
  - Swelling [Unknown]
  - Dizziness [Unknown]
  - Weight increased [Unknown]
